FAERS Safety Report 14259652 (Version 2)
Quarter: 2017Q4

REPORT INFORMATION
  Report Type: Report from Study
  Country: US (occurrence: US)
  Receive Date: 20171207
  Receipt Date: 20171228
  Transmission Date: 20180321
  Serious: Yes (Hospitalization, Other)
  Sender: FDA-Public Use
  Company Number: US-AMGEN-USACT2017178746

PATIENT
  Age: 58 Year
  Sex: Male
  Weight: 95.9 kg

DRUGS (1)
  1. ROMIPLOSTIM [Suspect]
     Active Substance: ROMIPLOSTIM
     Indication: THROMBOCYTOPENIA
     Dosage: 500 MCG, QWK
     Route: 058
     Dates: start: 20161209

REACTIONS (18)
  - Transaminases increased [Unknown]
  - Mental status changes [Recovered/Resolved]
  - Septic shock [Recovered/Resolved]
  - Proteus infection [Recovered/Resolved]
  - Hepatic encephalopathy [Unknown]
  - Pyrexia [Unknown]
  - Enterococcal infection [Recovered/Resolved]
  - Sepsis [Unknown]
  - Ileus [Unknown]
  - Platelet count decreased [Unknown]
  - Hypophagia [Recovered/Resolved]
  - Candida infection [Recovered/Resolved]
  - Hepatic failure [Recovered/Resolved]
  - Nausea [Recovered/Resolved]
  - Vomiting [Recovered/Resolved]
  - Metastases to peritoneum [Unknown]
  - Escherichia bacteraemia [Recovered/Resolved]
  - Deep vein thrombosis [Recovered/Resolved]

NARRATIVE: CASE EVENT DATE: 2017
